FAERS Safety Report 16226628 (Version 1)
Quarter: 2019Q2

REPORT INFORMATION
  Report Type: Spontaneous
  Country: CA (occurrence: CA)
  Receive Date: 20190423
  Receipt Date: 20190423
  Transmission Date: 20190711
  Serious: Yes (Hospitalization, Other)
  Sender: FDA-Public Use
  Company Number: CA-TEVA-2019-CA-1039908

PATIENT
  Age: 9 Year
  Sex: Male
  Weight: 51 kg

DRUGS (10)
  1. DEXAMETHASONE. [Suspect]
     Active Substance: DEXAMETHASONE
     Indication: ACUTE LYMPHOCYTIC LEUKAEMIA
     Route: 048
  2. VINCRISTINE SULFATE. [Concomitant]
     Active Substance: VINCRISTINE SULFATE
  3. HYDROCORTISONE. [Suspect]
     Active Substance: HYDROCORTISONE
     Indication: ACUTE LYMPHOCYTIC LEUKAEMIA
     Route: 048
  4. DOXORUBICIN HYDROCHLORIDE INJECTION [Concomitant]
     Active Substance: DOXORUBICIN HYDROCHLORIDE
  5. MERCAPTOPURINE. [Concomitant]
     Active Substance: MERCAPTOPURINE
  6. METHYLPREDNISOLONE SODIUM SUCCINATE. [Suspect]
     Active Substance: METHYLPREDNISOLONE SODIUM SUCCINATE
     Indication: ACUTE LYMPHOCYTIC LEUKAEMIA
     Route: 042
  7. CYTARABINE. [Concomitant]
     Active Substance: CYTARABINE
  8. METHOTREXATE. [Concomitant]
     Active Substance: METHOTREXATE
  9. PREDNISONE. [Suspect]
     Active Substance: PREDNISONE
     Indication: ACUTE LYMPHOCYTIC LEUKAEMIA
     Route: 048
  10. PEG-L-ASPARAGINASE [Concomitant]
     Active Substance: PEGASPARGASE

REACTIONS (2)
  - Hypoglycaemia [Recovered/Resolved]
  - Adrenal insufficiency [Recovered/Resolved]
